FAERS Safety Report 5316707-8 (Version None)
Quarter: 2007Q2

REPORT INFORMATION
  Report Type: 
  Country: None (occurrence: None)
  Receive Date: 20070504
  Receipt Date: 20070425
  Transmission Date: 20071010
  Serious: Yes (Death, Hospitalization)
  Sender: FDA-Public Use
  Company Number: DE-GENENTECH-240542

PATIENT
  Sex: Male

DRUGS (4)
  1. LUCENTIS [Suspect]
     Indication: MACULAR DEGENERATION
     Dosage: 1 DF, SINGLE
     Route: 031
     Dates: start: 20070222, end: 20070322
  2. LUCENTIS [Suspect]
     Dosage: 1 DF, SINGLE
     Route: 031
     Dates: start: 20070323, end: 20070323
  3. CORTICOID [Concomitant]
     Indication: ARTHRALGIA
  4. CORTICOID [Concomitant]
     Indication: MYALGIA

REACTIONS (4)
  - ARTHRALGIA [None]
  - BACK PAIN [None]
  - METASTASES TO BONE [None]
  - MYALGIA [None]
